FAERS Safety Report 14952580 (Version 6)
Quarter: 2018Q3

REPORT INFORMATION
  Report Type: Spontaneous
  Country: US (occurrence: US)
  Receive Date: 20180530
  Receipt Date: 20180719
  Transmission Date: 20181010
  Serious: No
  Sender: FDA-Public Use
  Company Number: US-PFIZER INC-2018107115

PATIENT
  Age: 74 Year
  Sex: Female

DRUGS (4)
  1. NORVASC [Suspect]
     Active Substance: AMLODIPINE BESYLATE
     Dosage: 7.5 MG, UNK
  2. NORVASC [Suspect]
     Active Substance: AMLODIPINE BESYLATE
     Dosage: 2.5 MG, UNK
  3. NORVASC [Suspect]
     Active Substance: AMLODIPINE BESYLATE
     Dosage: 5 MG, UNK
  4. NORVASC [Suspect]
     Active Substance: AMLODIPINE BESYLATE
     Indication: HYPERTENSION
     Dosage: UNK

REACTIONS (18)
  - Muscle spasms [Unknown]
  - Flushing [Unknown]
  - Myalgia [Unknown]
  - Pruritus [Unknown]
  - Pollakiuria [Unknown]
  - Intentional product misuse [Unknown]
  - Burning sensation [Unknown]
  - Chest pain [Unknown]
  - Hyperhidrosis [Unknown]
  - Constipation [Unknown]
  - Night sweats [Unknown]
  - Cough [Unknown]
  - Oedema [Unknown]
  - Fatigue [Unknown]
  - Weight increased [Unknown]
  - Musculoskeletal stiffness [Unknown]
  - Palpitations [Unknown]
  - Dizziness [Unknown]
